FAERS Safety Report 6234485-5 (Version None)
Quarter: 2009Q2

REPORT INFORMATION
  Report Type: 
  Country: None (occurrence: None)
  Receive Date: 20090618
  Receipt Date: 20080805
  Transmission Date: 20091009
  Serious: Yes (Hospitalization)
  Sender: FDA-Public Use
  Company Number: US-BRISTOL-MYERS SQUIBB COMPANY-14290100

PATIENT
  Age: 72 Year
  Sex: Male

DRUGS (1)
  1. SINEMET [Suspect]

REACTIONS (1)
  - HOSPITALISATION [None]
